FAERS Safety Report 9851177 (Version 1)
Quarter: 2014Q1

REPORT INFORMATION
  Report Type: Spontaneous
  Country: US (occurrence: US)
  Receive Date: 20140128
  Receipt Date: 20140128
  Transmission Date: 20141002
  Serious: No
  Sender: FDA-Public Use
  Company Number: US-SANOFI-AVENTIS-2013SA085702

PATIENT
  Sex: Female

DRUGS (3)
  1. LASIX [Suspect]
     Indication: CARDIAC FAILURE
     Route: 065
     Dates: start: 20130804
  2. ALL OTHER THERAPEUTIC PRODUCTS [Suspect]
     Indication: EMPHYSEMA
     Route: 048
     Dates: start: 201304
  3. PREDNISONE [Concomitant]
     Route: 065

REACTIONS (2)
  - Weight decreased [Not Recovered/Not Resolved]
  - Diarrhoea [Not Recovered/Not Resolved]
